FAERS Safety Report 4726816-X (Version None)
Quarter: 2005Q3

REPORT INFORMATION
  Report Type: 
  Country: None (occurrence: None)
  Receive Date: 20050725
  Receipt Date: 20050428
  Transmission Date: 20060218
  Serious: No
  Sender: FDA-Public Use
  Company Number: USA050496873

PATIENT
  Age: 17 Year
  Sex: Male
  Weight: 91 kg

DRUGS (3)
  1. STRATTERA [Suspect]
     Indication: DISTURBANCE IN ATTENTION
     Dosage: 40 MG/2 WEEK
     Dates: start: 20030301
  2. CONCERTA [Concomitant]
  3. ORAP [Concomitant]

REACTIONS (2)
  - ANGER [None]
  - IRRITABILITY [None]
